FAERS Safety Report 6721600-X (Version None)
Quarter: 2010Q2

REPORT INFORMATION
  Report Type: 
  Country: None (occurrence: None)
  Receive Date: 20100512
  Receipt Date: 20100429
  Transmission Date: 20101027
  Serious: Yes (Other)
  Sender: FDA-Public Use
  Company Number: PHHY2009CA38264

PATIENT

DRUGS (2)
  1. CO-DIOVAN T32564+ [Suspect]
     Dosage: 160/12.5 MG
  2. ZOCOR [Concomitant]

REACTIONS (2)
  - BLOOD PRESSURE INADEQUATELY CONTROLLED [None]
  - PROTEIN URINE PRESENT [None]
